FAERS Safety Report 14120680 (Version 1)
Quarter: 2017Q4

REPORT INFORMATION
  Report Type: Spontaneous
  Country: IT (occurrence: IT)
  Receive Date: 20171024
  Receipt Date: 20171024
  Transmission Date: 20180321
  Serious: Yes (Hospitalization, Other)
  Sender: FDA-Public Use
  Company Number: IT-PFIZER INC-2017448693

PATIENT
  Age: 43 Year
  Sex: Female

DRUGS (3)
  1. LOBIVON [Suspect]
     Active Substance: NEBIVOLOL HYDROCHLORIDE
     Indication: INTENTIONAL SELF-INJURY
     Dosage: 140 MG, TOTAL (28 TABLET OF STRENGTH OF 5 MG)
     Route: 048
     Dates: start: 20170716, end: 20170716
  2. PROZIN (CHLORPROMAZINE HYDROCHLORIDE) [Suspect]
     Active Substance: CHLORPROMAZINE HYDROCHLORIDE
     Indication: INTENTIONAL SELF-INJURY
     Dosage: 25 MG, TOTAL (1 DF)
     Route: 048
     Dates: start: 20170716, end: 20170716
  3. RAMIPRIL. [Suspect]
     Active Substance: RAMIPRIL
     Indication: INTENTIONAL SELF-INJURY
     Dosage: 70 MG, TOTAL (28 TABLET OF STRENGTH OF 2.5 MG)
     Route: 048
     Dates: start: 20170716, end: 20170716

REACTIONS (7)
  - Hypotension [Unknown]
  - Coma scale abnormal [Unknown]
  - Drug abuse [Unknown]
  - Sopor [Unknown]
  - Intentional overdose [Unknown]
  - Bradycardia [Unknown]
  - Miosis [Unknown]

NARRATIVE: CASE EVENT DATE: 20170716
